APPROVED DRUG PRODUCT: SEZABY
Active Ingredient: PHENOBARBITAL SODIUM
Strength: 100MG/VIAL
Dosage Form/Route: POWDER;INTRAVENOUS
Application: N215910 | Product #001
Applicant: SUN PHARMACEUTICAL INDUSTRIES INC
Approved: Nov 17, 2022 | RLD: Yes | RS: Yes | Type: RX

PATENTS:
Patent 11857683 | Expires: Apr 7, 2042

EXCLUSIVITY:
Code: ODE-414 | Date: Nov 17, 2029